APPROVED DRUG PRODUCT: ZOLPIMIST
Active Ingredient: ZOLPIDEM TARTRATE
Strength: 5MG/SPRAY
Dosage Form/Route: SPRAY, METERED;ORAL
Application: N022196 | Product #001
Applicant: AYTU BIOSCIENCE INC
Approved: Dec 19, 2008 | RLD: Yes | RS: No | Type: DISCN

PATENTS:
Patent 8236285 | Expires: Aug 7, 2032